FAERS Safety Report 5695721-7 (Version None)
Quarter: 2008Q2

REPORT INFORMATION
  Report Type: 
  Country: None (occurrence: None)
  Receive Date: 20080403
  Receipt Date: 20080401
  Transmission Date: 20081010
  Serious: Yes (Death)
  Sender: FDA-Public Use
  Company Number: AR_38/08

PATIENT
  Sex: Female

DRUGS (1)
  1. SODIUM IODIDE I 131 [Suspect]
     Indication: THYROID CANCER
     Dosage: 100 MCI, ORAL
     Route: 048
     Dates: start: 20080111

REACTIONS (1)
  - DEATH [None]
